FAERS Safety Report 25055185 (Version 1)
Quarter: 2025Q1

REPORT INFORMATION
  Report Type: Spontaneous
  Country: CA (occurrence: CA)
  Receive Date: 20250308
  Receipt Date: 20250308
  Transmission Date: 20250409
  Serious: Yes (Other)
  Sender: ROCHE
  Company Number: CA-002147023-NVSC2025CA037329

PATIENT
  Age: 16 Year
  Sex: Female
  Weight: 78 kg

DRUGS (2)
  1. OMALIZUMAB [Suspect]
     Active Substance: OMALIZUMAB
     Indication: Asthma
     Route: 065
  2. BILASTINE [Concomitant]
     Active Substance: BILASTINE
     Indication: Product used for unknown indication
     Route: 065

REACTIONS (13)
  - Bronchial obstruction [Unknown]
  - Chest discomfort [Unknown]
  - Cough [Unknown]
  - Discomfort [Unknown]
  - Dyspnoea [Unknown]
  - Forced expiratory volume decreased [Unknown]
  - Frustration tolerance decreased [Unknown]
  - Nasal congestion [Unknown]
  - Parosmia [Unknown]
  - Perfume sensitivity [Unknown]
  - Rhinorrhoea [Unknown]
  - Sleep disorder [Unknown]
  - Weight increased [Unknown]
